FAERS Safety Report 4295072-1 (Version None)
Quarter: 2004Q1

REPORT INFORMATION
  Report Type: 
  Country: None (occurrence: None)
  Receive Date: 20040213
  Receipt Date: 20040127
  Transmission Date: 20041129
  Serious: Yes (Hospitalization)
  Sender: FDA-Public Use
  Company Number: 2004-06597

PATIENT
  Age: 44 Year
  Sex: Male

DRUGS (10)
  1. EMTRICITABINE [Suspect]
     Indication: HIV INFECTION
     Dosage: 200 MG QD PO
     Route: 048
     Dates: start: 20031228
  2. VIREAD [Suspect]
     Indication: HIV INFECTION
     Dosage: 300 MG QD PO
     Route: 048
     Dates: start: 20031228
  3. KALETRA [Concomitant]
  4. CO-TRIMOXAZOLE [Concomitant]
  5. AZITHROMYCIN [Concomitant]
  6. DEXAMETHASONE [Concomitant]
  7. HYDROCHLOROTHIAZIDE [Concomitant]
  8. LABETALOL HCL [Concomitant]
  9. VALPROIC ACID [Concomitant]
  10. FLUCONAZOLE [Concomitant]

REACTIONS (4)
  - BONE MARROW DEPRESSION [None]
  - CONVULSION [None]
  - HYPERGLYCAEMIA [None]
  - RENAL FAILURE ACUTE [None]
